FAERS Safety Report 25084900 (Version 2)
Quarter: 2025Q2

REPORT INFORMATION
  Report Type: Spontaneous
  Country: TW (occurrence: TW)
  Receive Date: 20250317
  Receipt Date: 20250520
  Transmission Date: 20250716
  Serious: Yes (Other)
  Sender: NOVARTIS
  Company Number: TW-002147023-NVSC2025TW040314

PATIENT

DRUGS (1)
  1. KYMRIAH [Suspect]
     Active Substance: TISAGENLECLEUCEL
     Indication: Product used for unknown indication
     Route: 042
     Dates: start: 20250210, end: 20250210

REACTIONS (7)
  - Pyrexia [Recovered/Resolved]
  - Cytokine release syndrome [Recovered/Resolved]
  - Immune effector cell-associated neurotoxicity syndrome [Recovered/Resolved]
  - Lymphadenopathy [Recovered/Resolved]
  - Swelling [Recovered/Resolved]
  - Condition aggravated [Unknown]
  - Disease progression [Unknown]
